FAERS Safety Report 5896745-7 (Version None)
Quarter: 2008Q3

REPORT INFORMATION
  Report Type: 
  Country: None (occurrence: None)
  Receive Date: 20080924
  Receipt Date: 20080626
  Transmission Date: 20090109
  Serious: Yes (Other)
  Sender: FDA-Public Use
  Company Number: US-ASTRAZENECA-2007UW27059

PATIENT
  Age: 47 Year
  Sex: Male
  Weight: 145.1 kg

DRUGS (5)
  1. SEROQUEL [Suspect]
     Indication: DEPRESSION
     Dosage: VARIOUS DOSES INCLUDING BUT NOT LIMITED TO 100 MG, 200 MG, 300 MG, 600 MG
     Route: 048
     Dates: start: 19920101, end: 20070301
  2. HALDOL [Concomitant]
     Dates: start: 20040101
  3. LEXAPRO [Concomitant]
     Dates: start: 20040101
  4. DEPAKOTE [Concomitant]
     Dates: start: 20030101
  5. WELLBUTRIN SR [Concomitant]
     Dates: start: 20020101

REACTIONS (4)
  - CONVULSION [None]
  - DIABETES MELLITUS [None]
  - HEPATITIS C [None]
  - LIVER DISORDER [None]
